FAERS Safety Report 21772672 (Version 1)
Quarter: 2022Q4

REPORT INFORMATION
  Report Type: Report from Study
  Country: FR (occurrence: None)
  Receive Date: 20221223
  Receipt Date: 20221223
  Transmission Date: 20230113
  Serious: Yes (Death)
  Sender: FDA-Public Use
  Company Number: 2022A413775

PATIENT
  Age: 889 Month
  Sex: Female
  Weight: 56 kg

DRUGS (1)
  1. EVUSHELD [Suspect]
     Active Substance: CILGAVIMAB\TIXAGEVIMAB
     Indication: COVID-19 prophylaxis
     Dosage: (TIXAGEVIMAB / CILGAVIMAB) ONCE/SINGLE ADMINISTRATION
     Route: 030
     Dates: start: 20220718, end: 20220718

REACTIONS (2)
  - COVID-19 [Fatal]
  - Concomitant disease aggravated [Fatal]

NARRATIVE: CASE EVENT DATE: 20220722
